FAERS Safety Report 7487425-5 (Version None)
Quarter: 2011Q2

REPORT INFORMATION
  Report Type: 
  Country: None (occurrence: None)
  Receive Date: 20110510
  Receipt Date: 20110502
  Transmission Date: 20111010
  Serious: Yes (Disabling, Other)
  Sender: FDA-Public Use
  Company Number: 1000019642

PATIENT
  Age: 84 Year
  Sex: Female
  Weight: 55 kg

DRUGS (7)
  1. LEKOVIT CA(CALCIUM CARBONATE, COLECALCIFEROL)(CALCIUM CARBONATE, COLEC [Concomitant]
  2. ACETAMINOPHEN AND TRAMADOL HCL [Concomitant]
  3. SERESTA (OXAZEPAM) (10 MILLIGRAM) (OXAZEPAM) [Concomitant]
  4. MEMANTINE [Suspect]
     Indication: DEMENTIA ALZHEIMER'S TYPE
     Dosage: 10 MG (10 MG, 1 IN 1 D) ,ORAL
     Route: 048
     Dates: start: 20110215, end: 20110301
  5. SPECIAFOLDINE (FOLIC ACID) (FOLIC ACID) [Concomitant]
  6. KARDEGIC (ACETYLSALICYLATE LYSINE)(75 MILLIGRAM)(ACETYLSALICYLATE LYSI [Concomitant]
  7. EFFEXOR LP (VENLAFAXINE HYDROCHLORIDE)(37.5 MILLIGRAM)(VENLAFAXINE HYD [Concomitant]

REACTIONS (10)
  - HALLUCINATION [None]
  - COORDINATION ABNORMAL [None]
  - CONDITION AGGRAVATED [None]
  - GAIT DISTURBANCE [None]
  - CONFUSIONAL STATE [None]
  - GENERAL PHYSICAL HEALTH DETERIORATION [None]
  - IRRITABILITY [None]
  - ABNORMAL BEHAVIOUR [None]
  - HYPOKALAEMIA [None]
  - PSYCHIATRIC SYMPTOM [None]
